FAERS Safety Report 15669923 (Version 1)
Quarter: 2018Q4

REPORT INFORMATION
  Report Type: Spontaneous
  Country: US (occurrence: US)
  Receive Date: 20181119
  Receipt Date: 20181119
  Transmission Date: 20190205
  Serious: Yes (Disabling)
  Sender: FDA-Public Use
  Company Number: None

PATIENT
  Age: 63 Year
  Sex: Female
  Weight: 94.5 kg

DRUGS (7)
  1. GRALISE [Concomitant]
     Active Substance: GABAPENTIN
  2. BIO-IDENTICAL HORMONES [Concomitant]
  3. AMITRYPTILINE [Concomitant]
     Active Substance: AMITRIPTYLINE
  4. CYMBALTA [Suspect]
     Active Substance: DULOXETINE HYDROCHLORIDE
     Indication: NEURALGIA
     Dosage: ?          QUANTITY:1 DF DOSAGE FORM;?
     Route: 048
  5. CPAP [Concomitant]
     Active Substance: DEVICE
  6. LUNESTA [Concomitant]
     Active Substance: ESZOPICLONE
  7. KLONOPIN [Suspect]
     Active Substance: CLONAZEPAM

REACTIONS (7)
  - Tinnitus [None]
  - Weight decreased [None]
  - Fatigue [None]
  - Insomnia [None]
  - Nausea [None]
  - Feeling abnormal [None]
  - Therapy change [None]

NARRATIVE: CASE EVENT DATE: 20180115
